FAERS Safety Report 20663072 (Version 1)
Quarter: 2022Q2

REPORT INFORMATION
  Report Type: Spontaneous
  Country: GB (occurrence: GB)
  Receive Date: 20220401
  Receipt Date: 20220401
  Transmission Date: 20220720
  Serious: Yes (Death, Other)
  Sender: FDA-Public Use
  Company Number: None

PATIENT
  Age: 76 Year
  Sex: Male

DRUGS (1)
  1. CAPECITABINE [Suspect]
     Active Substance: CAPECITABINE
     Indication: Chemotherapy
     Route: 048

REACTIONS (6)
  - Death [Fatal]
  - Acute kidney injury [Unknown]
  - General physical health deterioration [Unknown]
  - Diarrhoea [Unknown]
  - Asthenia [Unknown]
  - Electrolyte imbalance [Unknown]
